FAERS Safety Report 13735795 (Version 1)
Quarter: 2017Q3

REPORT INFORMATION
  Report Type: Spontaneous
  Country: GR (occurrence: GR)
  Receive Date: 20170710
  Receipt Date: 20170710
  Transmission Date: 20171127
  Serious: Yes (Other)
  Sender: FDA-Public Use
  Company Number: GR-CONCORDIA PHARMACEUTICALS INC.-GSH201707-003927

PATIENT
  Age: 68 Year
  Sex: Male

DRUGS (5)
  1. ALFUZOSIN [Suspect]
     Active Substance: ALFUZOSIN
     Indication: BENIGN PROSTATIC HYPERPLASIA
     Route: 048
     Dates: start: 2002, end: 201607
  2. DILATREND [Concomitant]
     Active Substance: CARVEDILOL
  3. SOLURIC [Concomitant]
     Active Substance: ALLOPURINOL
  4. PRAVACHOL [Concomitant]
     Active Substance: PRAVASTATIN SODIUM
  5. XOZAL [Concomitant]
     Active Substance: LEVOCETIRIZINE

REACTIONS (2)
  - Hyperhidrosis [Recovered/Resolved]
  - Hypothermia [Recovered/Resolved]

NARRATIVE: CASE EVENT DATE: 201607
